FAERS Safety Report 15808478 (Version 2)
Quarter: 2019Q1

REPORT INFORMATION
  Report Type: Spontaneous
  Country: ES (occurrence: ES)
  Receive Date: 20190110
  Receipt Date: 20190320
  Transmission Date: 20190417
  Serious: Yes (Other)
  Sender: FDA-Public Use
  Company Number: ES-BAYER-2019-006738

PATIENT
  Age: 75 Year
  Sex: Male

DRUGS (3)
  1. DENOSUMAB [Suspect]
     Active Substance: DENOSUMAB
     Indication: HORMONE-REFRACTORY PROSTATE CANCER
  2. XOFIGO [Suspect]
     Active Substance: RADIUM RA-223 DICHLORIDE
     Indication: HORMONE-REFRACTORY PROSTATE CANCER
     Dosage: UNK
     Dates: start: 20151022, end: 20151022
  3. XOFIGO [Suspect]
     Active Substance: RADIUM RA-223 DICHLORIDE
     Indication: HORMONE-REFRACTORY PROSTATE CANCER
     Dosage: UNK
     Dates: start: 20151115, end: 20151115

REACTIONS (11)
  - Pain [None]
  - Platelet count decreased [None]
  - General physical health deterioration [None]
  - Nausea [None]
  - Vomiting [None]
  - Blood alkaline phosphatase increased [None]
  - Pain in extremity [None]
  - Productive cough [None]
  - Prostatic specific antigen increased [None]
  - Bedridden [None]
  - Decreased appetite [None]

NARRATIVE: CASE EVENT DATE: 20151023
